FAERS Safety Report 10184286 (Version 2)
Quarter: 2014Q3

REPORT INFORMATION
  Report Type: Spontaneous
  Country: US (occurrence: US)
  Receive Date: 20140520
  Receipt Date: 20140725
  Transmission Date: 20150326
  Serious: No
  Sender: FDA-Public Use
  Company Number: US-009507513-1405USA006321

PATIENT
  Age: 44 Year
  Sex: Female
  Weight: 57.14 kg

DRUGS (1)
  1. REMERON [Suspect]
     Active Substance: MIRTAZAPINE
     Indication: INSOMNIA
     Dosage: 15 MG, QD
     Route: 048
     Dates: start: 20130913, end: 20130919

REACTIONS (4)
  - Tremor [Recovered/Resolved]
  - Depression [Recovered/Resolved]
  - Drug hypersensitivity [Unknown]
  - Anxiety [Recovered/Resolved]

NARRATIVE: CASE EVENT DATE: 20130913
